FAERS Safety Report 8189106 (Version 5)
Quarter: 2013Q2

REPORT INFORMATION
  Report Type: Spontaneous
  Country: FR (occurrence: FR)
  Receive Date: 20111019
  Receipt Date: 20130411
  Transmission Date: 20140414
  Serious: Yes (Hospitalization)
  Sender: FDA-Public Use
  Company Number: FR-UCBSA-043368

PATIENT
  Age: 56 Year
  Sex: Female

DRUGS (23)
  1. KEPPRA [Suspect]
     Indication: EPILEPSY
     Route: 048
     Dates: start: 20110815, end: 20110911
  2. KEPPRA [Suspect]
     Indication: EPILEPSY
     Route: 048
     Dates: start: 20110912, end: 20110914
  3. KEPPRA [Suspect]
     Indication: EPILEPSY
     Route: 048
     Dates: start: 20110915
  4. ZELBORAF [Suspect]
     Indication: METASTATIC MALIGNANT MELANOMA
     Dosage: 4 TABLETS IN THE MORNING AND IN THE EVENING
     Route: 048
     Dates: start: 20110829, end: 20110910
  5. ZELBORAF [Suspect]
     Indication: METASTATIC MALIGNANT MELANOMA
     Dosage: 3 TABLETS
     Route: 048
     Dates: start: 20110920, end: 201211
  6. URBANYL [Suspect]
     Indication: EPILEPSY
     Dosage: DAILY DOSE: 5 MG
     Route: 048
     Dates: start: 20110815, end: 20110923
  7. MUPHORAN [Suspect]
     Indication: METASTATIC MALIGNANT MELANOMA
     Dosage: 165 MG BY COURSE,THIRD COURSE
     Route: 042
     Dates: start: 20110901, end: 20110901
  8. MUPHORAN [Suspect]
     Indication: METASTATIC MALIGNANT MELANOMA
     Dosage: 165 MG BY COURSE ,SECOND COURSE
     Route: 042
     Dates: start: 20110825, end: 20110825
  9. MUPHORAN [Suspect]
     Indication: METASTATIC MALIGNANT MELANOMA
     Dosage: 165 MG BY COURSE,FIRST COURSE
     Route: 042
     Dates: start: 20110818, end: 20110818
  10. TEMODAL [Suspect]
     Indication: MYOCARDIAL INFARCTION
     Dosage: 150MG DAILY FOR 3 WEEKS THEN STOP FOR 1 WEEK
     Route: 048
     Dates: start: 201205, end: 201211
  11. ATARAX [Concomitant]
     Dates: start: 201109
  12. XYZALL [Concomitant]
     Dates: start: 201109
  13. INEXIUM [Concomitant]
     Dates: start: 201109
  14. CACIT D3 [Concomitant]
     Dates: start: 201109
  15. CORTANCYL [Concomitant]
     Dates: start: 201109
  16. ZELITRIX [Concomitant]
     Dates: start: 201109
  17. PROCTOLOG [Concomitant]
     Dates: start: 201109
  18. DAFLON [Concomitant]
     Dates: start: 201109
  19. PENTACARINAT [Concomitant]
     Dates: start: 201109
  20. LEVEMIR [Concomitant]
     Dates: start: 201109
  21. NOVONORM [Concomitant]
     Dates: start: 201109
  22. ZELBORAF [Concomitant]
  23. TEMODAL [Concomitant]

REACTIONS (7)
  - Rash maculo-papular [Recovered/Resolved]
  - Pyrexia [Unknown]
  - Thrombocytopenia [Recovered/Resolved]
  - Leukopenia [Recovered/Resolved]
  - Agranulocytosis [Unknown]
  - Myocardial infarction [Recovered/Resolved]
  - Acute pulmonary oedema [Unknown]
